FAERS Safety Report 9885373 (Version 1)
Quarter: 2014Q1

REPORT INFORMATION
  Report Type: Spontaneous
  Country: US (occurrence: US)
  Receive Date: 20140210
  Receipt Date: 20140210
  Transmission Date: 20141002
  Serious: No
  Sender: FDA-Public Use
  Company Number: US-PFIZER INC-2014037405

PATIENT
  Age: 38 Year
  Sex: Male

DRUGS (7)
  1. LYRICA [Suspect]
     Indication: PAIN
     Dosage: 75 MG, DAILY
     Dates: start: 201402
  2. CELEXA [Concomitant]
     Dosage: 10 MG, UNK
  3. OMEPRAZOLE [Concomitant]
     Dosage: 20 MG, UNK
  4. MOBIC [Concomitant]
     Dosage: 7.5 MG, UNK
  5. METHADONE [Concomitant]
     Dosage: UNK
  6. OXYCODONE [Concomitant]
     Dosage: 15 MG, UNK
  7. GLUCOSAMINE [Concomitant]
     Dosage: UNK

REACTIONS (2)
  - Chest pain [Recovering/Resolving]
  - Chest discomfort [Recovering/Resolving]
